FAERS Safety Report 4920317-1 (Version None)
Quarter: 2006Q1

REPORT INFORMATION
  Report Type: 
  Country: None (occurrence: None)
  Receive Date: 20060217
  Receipt Date: 20060206
  Transmission Date: 20060701
  Serious: Yes (Death, Hospitalization)
  Sender: FDA-Public Use
  Company Number: GXKR2006GB00787

PATIENT
  Age: 35 Year
  Sex: Male

DRUGS (3)
  1. PARACETAMOL+CODEINE (NGX)(ACETAMINOPHEN (PARACETAMOL), CODEINE PHOSPHA [Suspect]
     Dosage: 10-20 TDS, ORAL
     Route: 048
  2. ZOPICLONE(ZOPICLONE) [Suspect]
     Dosage: 10-20 TDS, ORAL
     Route: 048
  3. ACETAMINOPHEN [Suspect]
     Dosage: 40 TABS

REACTIONS (2)
  - MULTIPLE DRUG OVERDOSE INTENTIONAL [None]
  - PANCREATITIS [None]
